FAERS Safety Report 7764307-2 (Version None)
Quarter: 2011Q3

REPORT INFORMATION
  Report Type: 
  Country: None (occurrence: None)
  Receive Date: 20110921
  Receipt Date: 20110915
  Transmission Date: 20111222
  Serious: Yes (Other)
  Sender: FDA-Public Use
  Company Number: PL-SANOFI-AVENTIS-2011SA042792

PATIENT
  Age: 45 Year
  Sex: Male
  Weight: 82 kg

DRUGS (3)
  1. METHOTREXATE [Concomitant]
     Route: 048
     Dates: start: 20100401
  2. DICLOFENAC SODIUM [Concomitant]
     Route: 048
     Dates: start: 20100101
  3. ARAVA [Suspect]
     Indication: RHEUMATOID ARTHRITIS
     Route: 048
     Dates: start: 20110517, end: 20110629

REACTIONS (2)
  - ALANINE AMINOTRANSFERASE INCREASED [None]
  - ASPARTATE AMINOTRANSFERASE INCREASED [None]
